FAERS Safety Report 6140103-7 (Version None)
Quarter: 2009Q2

REPORT INFORMATION
  Report Type: 
  Country: None (occurrence: None)
  Receive Date: 20090401
  Receipt Date: 20090319
  Transmission Date: 20091009
  Serious: Yes (Hospitalization)
  Sender: FDA-Public Use
  Company Number: US-ROCHE-622882

PATIENT
  Age: 62 Year
  Sex: Male

DRUGS (4)
  1. XELODA [Suspect]
     Route: 065
  2. PROTONIX [Concomitant]
  3. ZOFRAN [Concomitant]
  4. PARENTERAL [Concomitant]
     Dosage: TOTAL PARENTERAL NUTRITION

REACTIONS (2)
  - DYSPHAGIA [None]
  - RENAL FAILURE ACUTE [None]
